FAERS Safety Report 18562241 (Version 1)
Quarter: 2020Q4

REPORT INFORMATION
  Report Type: Spontaneous
  Country: US (occurrence: US)
  Receive Date: 20201130
  Receipt Date: 20201130
  Transmission Date: 20210114
  Serious: No
  Sender: FDA-Public Use
  Company Number: US-LUPIN PHARMACEUTICALS INC.-2020-06293

PATIENT
  Age: 37 Year
  Sex: Male

DRUGS (5)
  1. PREGABALIN. [Suspect]
     Active Substance: PREGABALIN
     Dosage: 150 MILLIGRAM, BID
     Route: 065
  2. GABAPENTIN. [Suspect]
     Active Substance: GABAPENTIN
     Dosage: 300 MILLIGRAM, QID
     Route: 065
  3. PREGABALIN. [Suspect]
     Active Substance: PREGABALIN
     Indication: MYELITIS TRANSVERSE
     Dosage: 150 MILLIGRAM, TID
     Route: 065
  4. GABAPENTIN. [Suspect]
     Active Substance: GABAPENTIN
     Indication: MYELITIS TRANSVERSE
     Dosage: 600 MILLIGRAM, QID
     Route: 065
  5. DULOXETINE. [Suspect]
     Active Substance: DULOXETINE
     Indication: MYELITIS TRANSVERSE
     Dosage: 60 MILLIGRAM, QD
     Route: 065

REACTIONS (2)
  - Aphasia [Recovering/Resolving]
  - Memory impairment [Recovering/Resolving]
